FAERS Safety Report 24315387 (Version 1)
Quarter: 2024Q3

REPORT INFORMATION
  Report Type: Report from Study
  Country: US (occurrence: US)
  Receive Date: 20240913
  Receipt Date: 20240913
  Transmission Date: 20241016
  Serious: No
  Sender: ACADIA PHARMACEUTICALS
  Company Number: US-ACADIA PHARMACEUTICALS INC.-ACA-2024-PIM-005003

PATIENT
  Sex: Female

DRUGS (12)
  1. NUPLAZID [Suspect]
     Active Substance: PIMAVANSERIN TARTRATE
     Indication: Parkinson^s disease
     Dosage: 34 MILLIGRAM, QD
     Route: 048
     Dates: start: 202309
  2. OMEPRAZOLE [Concomitant]
     Active Substance: OMEPRAZOLE
  3. CELEBREX [Concomitant]
     Active Substance: CELECOXIB
  4. MOTRIN [Concomitant]
     Active Substance: IBUPROFEN
  5. ZOLOFT [Concomitant]
     Active Substance: SERTRALINE HYDROCHLORIDE
  6. ATORVASTATIN [Concomitant]
     Active Substance: ATORVASTATIN
  7. WELLBUTRIN [Concomitant]
     Active Substance: BUPROPION HYDROCHLORIDE
  8. SEROQUEL [Concomitant]
     Active Substance: QUETIAPINE FUMARATE
  9. MYRBETRIQ [Concomitant]
     Active Substance: MIRABEGRON
  10. GABAPENTIN [Concomitant]
     Active Substance: GABAPENTIN
  11. KEPPRA [Concomitant]
     Active Substance: LEVETIRACETAM
  12. RIVASTIGMINE [Concomitant]
     Active Substance: RIVASTIGMINE

REACTIONS (3)
  - Gait inability [Unknown]
  - Hallucination [Unknown]
  - Drug ineffective [Unknown]
